APPROVED DRUG PRODUCT: RISPERIDONE
Active Ingredient: RISPERIDONE
Strength: 1MG/ML
Dosage Form/Route: SOLUTION;ORAL
Application: A077719 | Product #001
Applicant: PHARMACEUTICAL ASSOCIATES INC
Approved: Jul 29, 2009 | RLD: No | RS: No | Type: DISCN